FAERS Safety Report 13183604 (Version 2)
Quarter: 2017Q1

REPORT INFORMATION
  Report Type: Report from Study
  Country: US (occurrence: US)
  Receive Date: 20170203
  Receipt Date: 20170314
  Transmission Date: 20170428
  Serious: Yes (Other)
  Sender: FDA-Public Use
  Company Number: US-UCBSA-2016010394

PATIENT
  Age: 63 Year
  Sex: Female

DRUGS (3)
  1. CERTOLIZUMAB PEGOL [Suspect]
     Active Substance: CERTOLIZUMAB PEGOL
     Dosage: 200 MG, EV 2 WEEKS(QOW); NDC NO: 5047470062
     Route: 058
     Dates: start: 20161007
  2. CERTOLIZUMAB PEGOL [Suspect]
     Active Substance: CERTOLIZUMAB PEGOL
     Indication: CROHN^S DISEASE
     Dosage: 400 MG, EV 4 WEEKS
     Route: 058
     Dates: start: 20160211, end: 2016
  3. CERTOLIZUMAB PEGOL [Suspect]
     Active Substance: CERTOLIZUMAB PEGOL
     Dosage: 200 MG, EV 2 WEEKS(QOW); NDC NO: 5047470062
     Route: 058
     Dates: start: 20161007

REACTIONS (4)
  - Injection site bruising [Not Recovered/Not Resolved]
  - Colitis [Not Recovered/Not Resolved]
  - Off label use [Unknown]
  - Pharyngitis streptococcal [Not Recovered/Not Resolved]

NARRATIVE: CASE EVENT DATE: 20160311
